FAERS Safety Report 12732857 (Version 1)
Quarter: 2016Q3

REPORT INFORMATION
  Report Type: Spontaneous
  Country: US (occurrence: US)
  Receive Date: 20160910
  Receipt Date: 20160910
  Transmission Date: 20161109
  Serious: Yes (Other)
  Sender: FDA-Public Use
  Company Number: None

PATIENT
  Age: 29 Year
  Sex: Female
  Weight: 65.25 kg

DRUGS (5)
  1. ADDERALL [Concomitant]
     Active Substance: AMPHETAMINE ASPARTATE\AMPHETAMINE SULFATE\DEXTROAMPHETAMINE SACCHARATE\DEXTROAMPHETAMINE SULFATE
  2. SOOLANTRA [Concomitant]
     Active Substance: IVERMECTIN
  3. ATIVAN [Concomitant]
     Active Substance: LORAZEPAM
  4. AMBIEN [Suspect]
     Active Substance: ZOLPIDEM TARTRATE
     Indication: INSOMNIA
     Route: 048
     Dates: start: 20160909, end: 20160910
  5. YASMIN [Concomitant]
     Active Substance: DROSPIRENONE\ETHINYL ESTRADIOL

REACTIONS (7)
  - Hypersomnia [None]
  - Drug effect increased [None]
  - Hallucination [None]
  - Product substitution issue [None]
  - Paranoia [None]
  - Suicidal ideation [None]
  - Somnolence [None]

NARRATIVE: CASE EVENT DATE: 20160909
